FAERS Safety Report 7202269-7 (Version None)
Quarter: 2010Q4

REPORT INFORMATION
  Report Type: 
  Country: None (occurrence: None)
  Receive Date: 20101229
  Receipt Date: 20101220
  Transmission Date: 20110411
  Serious: Yes (Hospitalization)
  Sender: FDA-Public Use
  Company Number: PHHO2010DE01594

PATIENT
  Sex: Male
  Weight: 72 kg

DRUGS (2)
  1. CERTICAN [Suspect]
     Indication: LIVER TRANSPLANT
     Dosage: 2 MG
     Route: 048
     Dates: start: 20090925, end: 20100111
  2. TACROLIMUS [Suspect]
     Indication: LIVER TRANSPLANT
     Dosage: 3.5 MG, BID
     Route: 048
     Dates: start: 20090824

REACTIONS (5)
  - CAROTID ARTERY STENOSIS [None]
  - EMBOLIC CEREBRAL INFARCTION [None]
  - ENDARTERECTOMY [None]
  - HEMIPLEGIA [None]
  - MONOPARESIS [None]
